FAERS Safety Report 9445255 (Version 5)
Quarter: 2014Q1

REPORT INFORMATION
  Report Type: Spontaneous
  Country: JP (occurrence: JP)
  Receive Date: 20130807
  Receipt Date: 20140214
  Transmission Date: 20141002
  Serious: Yes (Hospitalization)
  Sender: FDA-Public Use
  Company Number: JP-VIIV HEALTHCARE LIMITED-B0912940A

PATIENT
  Age: 22 Year
  Sex: Female
  Weight: 69 kg

DRUGS (10)
  1. COMBIVIR [Suspect]
     Indication: HIV INFECTION
     Dosage: 1IUAX TWICE PER DAY
     Route: 048
     Dates: start: 20121015
  2. ZIDOVUDINE [Suspect]
     Indication: HIV INFECTION
     Route: 042
     Dates: start: 20130121, end: 20130121
  3. KALETRA [Suspect]
     Indication: HIV INFECTION
     Dosage: 1IUAX TWICE PER DAY
     Route: 048
     Dates: start: 20121015
  4. RINDERON [Suspect]
     Indication: PROPHYLAXIS
     Dosage: 12MG PER DAY
     Route: 042
     Dates: start: 20130102, end: 20130103
  5. UTEMERIN [Suspect]
     Indication: THREATENED LABOUR
     Dosage: 5MG THREE TIMES PER DAY
     Route: 048
     Dates: start: 20130102, end: 20130121
  6. APRESOLINE [Suspect]
     Indication: HYPERTENSION
     Dosage: 10MG TWICE PER DAY
     Route: 048
     Dates: start: 20130102, end: 20130121
  7. NEO-MINOPHAGEN-C [Suspect]
     Indication: HEPATIC FUNCTION ABNORMAL
     Dosage: 20ML PER DAY
     Route: 042
     Dates: start: 20130112, end: 20130120
  8. CEFAZOLIN SODIUM [Suspect]
     Indication: INFECTION PROPHYLAXIS
     Dosage: 1G TWICE PER DAY
     Route: 042
     Dates: start: 20130121, end: 20130122
  9. LOXOPROFEN [Suspect]
     Dosage: 1IUAX THREE TIMES PER DAY
     Route: 048
     Dates: start: 20130121
  10. ATONIN O [Suspect]
     Indication: UTERINE HYPERTONUS
     Dosage: 5IU PER DAY
     Route: 042
     Dates: start: 20130121, end: 20130121

REACTIONS (13)
  - HELLP syndrome [Unknown]
  - Foetal growth restriction [Unknown]
  - Oligohydramnios [Unknown]
  - Foetal distress syndrome [Unknown]
  - Foetal growth restriction [Unknown]
  - Gestational hypertension [Recovered/Resolved]
  - Hepatic function abnormal [Recovered/Resolved]
  - Blood pressure increased [Unknown]
  - Abdominal pain upper [Unknown]
  - Platelet count decreased [Recovered/Resolved]
  - Premature labour [Unknown]
  - Pre-eclampsia [Unknown]
  - Exposure during pregnancy [Unknown]
